FAERS Safety Report 19781697 (Version 1)
Quarter: 2021Q3

REPORT INFORMATION
  Report Type: Spontaneous
  Country: US (occurrence: US)
  Receive Date: 20210902
  Receipt Date: 20210902
  Transmission Date: 20211014
  Serious: No
  Sender: FDA-Public Use
  Company Number: US-ENDO PHARMACEUTICALS INC-2021-001941

PATIENT
  Age: 34 Year
  Sex: Female

DRUGS (3)
  1. PEPCID [Concomitant]
     Active Substance: FAMOTIDINE
     Indication: GASTRITIS
  2. PANTOPRAZOLE [Concomitant]
     Active Substance: PANTOPRAZOLE
     Indication: GASTRITIS
  3. PREDNISONE. [Suspect]
     Active Substance: PREDNISONE
     Indication: IMMUNISATION REACTION
     Dosage: 50 MG, DAILY FOR 5 DAYS
     Route: 065
     Dates: start: 202103

REACTIONS (7)
  - Tachycardia [Unknown]
  - Insomnia [Unknown]
  - Gastritis [None]
  - Agitation [Unknown]
  - Sleep deficit [Unknown]
  - Nausea [Unknown]
  - Irritability [Unknown]
